FAERS Safety Report 25234480 (Version 1)
Quarter: 2025Q2

REPORT INFORMATION
  Report Type: Spontaneous
  Country: US (occurrence: None)
  Receive Date: 20250424
  Receipt Date: 20250424
  Transmission Date: 20250717
  Serious: Yes (Hospitalization)
  Sender: FDA-CTU
  Company Number: None

PATIENT
  Age: 28 Month
  Sex: Female
  Weight: 11.3 kg

DRUGS (4)
  1. CARBOPLATIN [Suspect]
     Active Substance: CARBOPLATIN
     Dates: end: 20250119
  2. ETOPOSIDE [Suspect]
     Active Substance: ETOPOSIDE
     Dates: end: 20250119
  3. FILGRASTIM [Suspect]
     Active Substance: FILGRASTIM
     Dates: end: 20250203
  4. MELPHALAN [Suspect]
     Active Substance: MELPHALAN
     Dates: end: 20250118

REACTIONS (4)
  - Norovirus infection [None]
  - Clostridium difficile colitis [None]
  - Dehydration [None]
  - Electrolyte imbalance [None]

NARRATIVE: CASE EVENT DATE: 20250311
